FAERS Safety Report 5005908-4 (Version None)
Quarter: 2006Q2

REPORT INFORMATION
  Report Type: 
  Country: None (occurrence: None)
  Receive Date: 20060518
  Receipt Date: 20060301
  Transmission Date: 20061013
  Serious: Yes (Hospitalization)
  Sender: FDA-Public Use
  Company Number: PHNU2006DE01195

PATIENT
  Age: 70 Year
  Sex: Female
  Weight: 110 kg

DRUGS (3)
  1. DIOVAN [Suspect]
     Indication: HYPERTENSION
     Dosage: 1 DF, QD
     Route: 048
     Dates: start: 20010601, end: 20060214
  2. DEXIBUPROFEN [Concomitant]
     Indication: PAIN
     Dosage: UNK, PRN
     Dates: start: 20050801
  3. MARCUMAR [Concomitant]
     Indication: ATRIAL FIBRILLATION
     Dates: start: 19991101

REACTIONS (5)
  - FIBRIN D DIMER INCREASED [None]
  - HAEMOPTYSIS [None]
  - PAIN [None]
  - PNEUMONIA [None]
  - RESPIRATORY TRACT INFECTION [None]
